FAERS Safety Report 17195810 (Version 2)
Quarter: 2020Q2

REPORT INFORMATION
  Report Type: Spontaneous
  Country: IT (occurrence: IT)
  Receive Date: 20191224
  Receipt Date: 20200610
  Transmission Date: 20200713
  Serious: Yes (Other)
  Sender: FDA-Public Use
  Company Number: NVSC2019IT075693

PATIENT
  Age: 32 Year
  Sex: Male

DRUGS (3)
  1. CLOBETASOL PROPIONATE. [Suspect]
     Active Substance: CLOBETASOL PROPIONATE
     Indication: PSORIASIS
     Dosage: 100 G, QW, 0.5 PERCENT
     Route: 061
  2. ACITRETIN. [Suspect]
     Active Substance: ACITRETIN
     Indication: PSORIASIS
     Dosage: UNK, GREATER THAN 8 MONTHS
     Route: 065
  3. CYCLOSPORINE. [Suspect]
     Active Substance: CYCLOSPORINE
     Indication: PSORIASIS
     Dosage: UNK, GREATER THAN 1 YEAR
     Route: 065

REACTIONS (5)
  - Disease progression [Unknown]
  - Back pain [Unknown]
  - Spinal compression fracture [Unknown]
  - Cushing^s syndrome [Unknown]
  - Osteoporosis [Unknown]
